FAERS Safety Report 9392722 (Version 1)
Quarter: 2013Q3

REPORT INFORMATION
  Report Type: Spontaneous
  Country: US (occurrence: US)
  Receive Date: 20130710
  Receipt Date: 20130710
  Transmission Date: 20140515
  Serious: No
  Sender: FDA-Public Use
  Company Number: US-009507513-1307USA004278

PATIENT
  Sex: Female

DRUGS (4)
  1. SAPHRIS [Suspect]
     Dosage: 5 MG, BID
  2. LAMICTAL [Concomitant]
  3. ZYPREXA [Concomitant]
     Dosage: 10 MG, QD
  4. SEROQUEL [Concomitant]
     Dosage: 300 MG, QD

REACTIONS (3)
  - Sedation [Unknown]
  - Logorrhoea [Unknown]
  - Weight increased [Unknown]
